FAERS Safety Report 19731239 (Version 2)
Quarter: 2024Q4

REPORT INFORMATION
  Report Type: Report from Study
  Country: US (occurrence: US)
  Receive Date: 20210821
  Receipt Date: 20241122
  Transmission Date: 20250115
  Serious: Yes (Hospitalization, Other)
  Sender: TAKEDA
  Company Number: US-TAKEDA-US202022473

PATIENT
  Age: 65 Year
  Sex: Female

DRUGS (2)
  1. HUMAN IMMUNOGLOBULIN G [Suspect]
     Active Substance: HUMAN IMMUNOGLOBULIN G
     Indication: Primary immunodeficiency syndrome
     Dosage: UNK
  2. HUMAN IMMUNOGLOBULIN G [Suspect]
     Active Substance: HUMAN IMMUNOGLOBULIN G
     Indication: Immunodeficiency common variable

REACTIONS (8)
  - Parkinson^s disease [Unknown]
  - Vomiting projectile [Unknown]
  - Infection [Unknown]
  - Pneumonia pseudomonal [Unknown]
  - Weight increased [Unknown]
  - Hiatus hernia [Unknown]
  - Dysphonia [Unknown]
  - Hot flush [Unknown]

NARRATIVE: CASE EVENT DATE: 20200710
